FAERS Safety Report 21983494 (Version 1)
Quarter: 2023Q1

REPORT INFORMATION
  Report Type: Spontaneous
  Country: DE (occurrence: None)
  Receive Date: 20230213
  Receipt Date: 20230213
  Transmission Date: 20230418
  Serious: Yes (Other)
  Sender: FDA-Public Use
  Company Number: DE-ROCHE-3283301

PATIENT
  Age: 38 Year
  Sex: Female

DRUGS (13)
  1. TRASTUZUMAB [Suspect]
     Active Substance: TRASTUZUMAB
     Indication: Breast cancer
     Dosage: NACT WITH DDETC PLUS TRASTUZUMAB + PERTUZUMAB
     Route: 065
     Dates: start: 201907, end: 201910
  2. TRASTUZUMAB [Suspect]
     Active Substance: TRASTUZUMAB
     Dosage: TRASTUZUMAB + PERTUZUMAB
     Route: 065
     Dates: start: 201911, end: 202009
  3. TRASTUZUMAB [Suspect]
     Active Substance: TRASTUZUMAB
     Dosage: CAPECITABINE+TRASTUZUMAB+TUCATINIB
     Route: 065
     Dates: start: 202103
  4. PERTUZUMAB [Suspect]
     Active Substance: PERTUZUMAB
     Indication: Breast cancer
     Dosage: NACT WITH DDETC PLUS TRASTUZUMAB + PERTUZUMAB
     Route: 065
     Dates: start: 201907, end: 201910
  5. PERTUZUMAB [Suspect]
     Active Substance: PERTUZUMAB
     Dosage: TRASTUZUMAB + PERTUZUMAB
     Route: 065
     Dates: start: 201911, end: 202009
  6. EPIRUBICIN [Suspect]
     Active Substance: EPIRUBICIN
     Indication: Breast cancer
     Dosage: NACT WITH DDETC PLUS TRASTUZUMAB + PERTUZUMAB
     Route: 065
     Dates: start: 201907, end: 201910
  7. TAXOL [Suspect]
     Active Substance: PACLITAXEL
     Indication: Breast cancer
     Dosage: NACT WITH DDETC PLUS TRASTUZUMAB + PERTUZUMAB
     Route: 065
     Dates: start: 201907, end: 201910
  8. CYCLOPHOSPHAMIDE [Suspect]
     Active Substance: CYCLOPHOSPHAMIDE
     Indication: Breast cancer
     Dosage: NACT WITH DDETC PLUS TRASTUZUMAB + PERTUZUMAB
     Route: 065
     Dates: start: 201907, end: 201910
  9. DIMETHYL SULFONE [Suspect]
     Active Substance: DIMETHYL SULFONE
     Indication: Breast cancer
     Route: 065
  10. ADO-TRASTUZUMAB EMTANSINE [Suspect]
     Active Substance: ADO-TRASTUZUMAB EMTANSINE
     Indication: Breast cancer metastatic
     Route: 065
     Dates: start: 202011, end: 202102
  11. CAPECITABINE [Suspect]
     Active Substance: CAPECITABINE
     Indication: Breast cancer metastatic
     Dosage: CAPECITABINE+TRASTUZUMAB+TUCATINIB
     Route: 048
     Dates: start: 202103
  12. TUCATINIB [Suspect]
     Active Substance: TUCATINIB
     Indication: Breast cancer metastatic
     Dosage: CAPECITABINE+TRASTUZUMAB+TUCATINIB
     Route: 065
     Dates: start: 202103
  13. FAM-TRASTUZUMAB DERUXTECAN-NXKI [Suspect]
     Active Substance: FAM-TRASTUZUMAB DERUXTECAN-NXKI
     Indication: Breast cancer metastatic
     Route: 065
     Dates: start: 202203, end: 202210

REACTIONS (4)
  - Metastases to lung [Not Recovered/Not Resolved]
  - Lymphangiosis carcinomatosa [Not Recovered/Not Resolved]
  - Metastases to central nervous system [Not Recovered/Not Resolved]
  - Metastases to liver [Not Recovered/Not Resolved]
